FAERS Safety Report 12435408 (Version 1)
Quarter: 2016Q2

REPORT INFORMATION
  Report Type: Spontaneous
  Country: US (occurrence: US)
  Receive Date: 20160603
  Receipt Date: 20160603
  Transmission Date: 20160815
  Serious: Yes (Other)
  Sender: FDA-Public Use
  Company Number: US-ROCHE-1708909

PATIENT
  Age: 76 Year
  Sex: Female
  Weight: 42.55 kg

DRUGS (5)
  1. XELODA [Suspect]
     Active Substance: CAPECITABINE
     Dosage: PM
     Route: 048
     Dates: start: 20151229
  2. BEVACIZUMAB [Suspect]
     Active Substance: BEVACIZUMAB
     Indication: RECTAL CANCER METASTATIC
     Route: 042
     Dates: start: 20151230
  3. OXALIPLATIN. [Suspect]
     Active Substance: OXALIPLATIN
     Indication: RECTAL CANCER METASTATIC
     Dosage: DOSE REDUCED DUE TO FOLLOWING DIARRHEA AND DEHYDRATION FROM 116.45 TO 93.18 MG (20 %DOSE REDUCTION).
     Route: 042
     Dates: start: 20151230
  4. XELODA [Suspect]
     Active Substance: CAPECITABINE
     Indication: RECTAL CANCER METASTATIC
     Dosage: AM
     Route: 048
     Dates: start: 20151229
  5. XELODA [Suspect]
     Active Substance: CAPECITABINE
     Dosage: 3 TABS AM, 2 TABS PM
     Route: 048
     Dates: start: 20151231

REACTIONS (4)
  - Dehydration [Recovered/Resolved]
  - Diarrhoea [Recovered/Resolved]
  - Nausea [Unknown]
  - Malaise [Unknown]

NARRATIVE: CASE EVENT DATE: 20160119
